FAERS Safety Report 10034376 (Version 1)
Quarter: 2014Q1

REPORT INFORMATION
  Report Type: Spontaneous
  Country: US (occurrence: None)
  Receive Date: 20140324
  Receipt Date: 20140324
  Transmission Date: 20141002
  Serious: Yes (Hospitalization)
  Sender: FDA-Public Use
  Company Number: None

PATIENT
  Age: 62 Year
  Sex: Female
  Weight: 110 kg

DRUGS (2)
  1. APIXABAN [Suspect]
     Indication: ATRIAL FIBRILLATION
     Dosage: 1  BID ORAL?DATES OF USE: HOME MEDICATION
     Route: 048
  2. APIXABAN 5 MG [Concomitant]

REACTIONS (4)
  - Occult blood positive [None]
  - Haemoglobin decreased [None]
  - Renal failure acute [None]
  - International normalised ratio increased [None]
